FAERS Safety Report 4921463-9 (Version None)
Quarter: 2006Q1

REPORT INFORMATION
  Report Type: 
  Country: None (occurrence: None)
  Receive Date: 20060222
  Receipt Date: 20060222
  Transmission Date: 20060701
  Serious: Yes (Hospitalization)
  Sender: FDA-Public Use
  Company Number: None

PATIENT
  Age: 67 Year
  Sex: Female
  Weight: 91.6266 kg

DRUGS (18)
  1. TOPOTECAN [Suspect]
     Indication: SMALL CELL LUNG CANCER STAGE UNSPECIFIED
     Dosage: 0.75 MG/M2  DAYS 1,2,3 Q 3WKS  IV
     Route: 042
     Dates: start: 20060118
  2. TOPOTECAN [Suspect]
     Indication: SMALL CELL LUNG CANCER STAGE UNSPECIFIED
     Dosage: 0.75 MG/M2  DAYS 1,2,3 Q 3WKS  IV
     Route: 042
     Dates: start: 20060119
  3. TOPOTECAN [Suspect]
     Indication: SMALL CELL LUNG CANCER STAGE UNSPECIFIED
     Dosage: 0.75 MG/M2  DAYS 1,2,3 Q 3WKS  IV
     Route: 042
     Dates: start: 20060120
  4. TOPOTECAN [Suspect]
     Indication: SMALL CELL LUNG CANCER STAGE UNSPECIFIED
     Dosage: 0.75 MG/M2  DAYS 1,2,3 Q 3WKS  IV
     Route: 042
     Dates: start: 20060208
  5. TOPOTECAN [Suspect]
     Indication: SMALL CELL LUNG CANCER STAGE UNSPECIFIED
     Dosage: 0.75 MG/M2  DAYS 1,2,3 Q 3WKS  IV
     Route: 042
     Dates: start: 20060209
  6. TOPOTECAN [Suspect]
     Indication: SMALL CELL LUNG CANCER STAGE UNSPECIFIED
     Dosage: 0.75 MG/M2  DAYS 1,2,3 Q 3WKS  IV
     Route: 042
     Dates: start: 20060210
  7. ETOPOSIDE [Suspect]
     Indication: SMALL CELL LUNG CANCER STAGE UNSPECIFIED
     Dosage: 70MG/M2   DAYS 8,9,10  Q 3 WKS  IV
     Route: 042
     Dates: start: 20060125
  8. ETOPOSIDE [Suspect]
     Indication: SMALL CELL LUNG CANCER STAGE UNSPECIFIED
     Dosage: 70MG/M2   DAYS 8,9,10  Q 3 WKS  IV
     Route: 042
     Dates: start: 20060126
  9. ETOPOSIDE [Suspect]
     Indication: SMALL CELL LUNG CANCER STAGE UNSPECIFIED
     Dosage: 70MG/M2   DAYS 8,9,10  Q 3 WKS  IV
     Route: 042
     Dates: start: 20060127
  10. ETOPOSIDE [Suspect]
     Indication: SMALL CELL LUNG CANCER STAGE UNSPECIFIED
     Dosage: 70MG/M2   DAYS 8,9,10  Q 3 WKS  IV
     Route: 042
     Dates: start: 20060215
  11. ETOPOSIDE [Suspect]
     Indication: SMALL CELL LUNG CANCER STAGE UNSPECIFIED
     Dosage: 70MG/M2   DAYS 8,9,10  Q 3 WKS  IV
     Route: 042
     Dates: start: 20060216
  12. ETOPOSIDE [Suspect]
     Indication: SMALL CELL LUNG CANCER STAGE UNSPECIFIED
     Dosage: 70MG/M2   DAYS 8,9,10  Q 3 WKS  IV
     Route: 042
     Dates: start: 20060217
  13. CISPLATIN [Suspect]
     Indication: SMALL CELL LUNG CANCER STAGE UNSPECIFIED
     Dosage: 20MG/M2  DAYS 8,9,10 Q3WKS IV
     Route: 042
     Dates: start: 20060125
  14. CISPLATIN [Suspect]
     Indication: SMALL CELL LUNG CANCER STAGE UNSPECIFIED
     Dosage: 20MG/M2  DAYS 8,9,10 Q3WKS IV
     Route: 042
     Dates: start: 20060126
  15. CISPLATIN [Suspect]
     Indication: SMALL CELL LUNG CANCER STAGE UNSPECIFIED
     Dosage: 20MG/M2  DAYS 8,9,10 Q3WKS IV
     Route: 042
     Dates: start: 20060127
  16. CISPLATIN [Suspect]
     Indication: SMALL CELL LUNG CANCER STAGE UNSPECIFIED
     Dosage: 20MG/M2  DAYS 8,9,10 Q3WKS IV
     Route: 042
     Dates: start: 20060215
  17. CISPLATIN [Suspect]
     Indication: SMALL CELL LUNG CANCER STAGE UNSPECIFIED
     Dosage: 20MG/M2  DAYS 8,9,10 Q3WKS IV
     Route: 042
     Dates: start: 20060216
  18. CISPLATIN [Suspect]
     Indication: SMALL CELL LUNG CANCER STAGE UNSPECIFIED
     Dosage: 20MG/M2  DAYS 8,9,10 Q3WKS IV
     Route: 042
     Dates: start: 20060217

REACTIONS (1)
  - MYOCARDIAL INFARCTION [None]
